FAERS Safety Report 5065850-X (Version None)
Quarter: 2006Q3

REPORT INFORMATION
  Report Type: 
  Country: None (occurrence: None)
  Receive Date: 20060728
  Receipt Date: 20060728
  Transmission Date: 20061208
  Serious: Yes (Other)
  Sender: FDA-Public Use
  Company Number: None

PATIENT
  Age: 55 Year
  Sex: Male

DRUGS (3)
  1. METHYLCELLULOSE (METHYLCELLULOSE)  SUGAR FREE ORANGE [Suspect]
     Indication: RECTAL FISSURE
  2. BLOOD PRESSURE MEDICATION [Concomitant]
  3. ASPIRIN [Concomitant]

REACTIONS (2)
  - ANAEMIA [None]
  - ASTHENIA [None]
